FAERS Safety Report 14910215 (Version 4)
Quarter: 2019Q1

REPORT INFORMATION
  Report Type: Report from Study
  Country: US (occurrence: US)
  Receive Date: 20180517
  Receipt Date: 20190103
  Transmission Date: 20190417
  Serious: Yes (Death, Hospitalization, Other)
  Sender: FDA-Public Use
  Company Number: US-ACTELION-A-NJ2018-172137

PATIENT
  Age: 73 Year
  Sex: Male

DRUGS (1)
  1. UPTRAVI [Suspect]
     Active Substance: SELEXIPAG
     Indication: PULMONARY ARTERIAL HYPERTENSION
     Dosage: 1200 MCG, BID
     Route: 048
     Dates: start: 20171030, end: 20181210

REACTIONS (6)
  - Brachytherapy [Unknown]
  - Fluid retention [Unknown]
  - Pulseless electrical activity [Fatal]
  - Urinary tract infection [Unknown]
  - Renal disorder [Unknown]
  - Malaise [Unknown]

NARRATIVE: CASE EVENT DATE: 2018
